FAERS Safety Report 18687534 (Version 1)
Quarter: 2020Q4

REPORT INFORMATION
  Report Type: Spontaneous
  Country: IT (occurrence: IT)
  Receive Date: 20201231
  Receipt Date: 20201231
  Transmission Date: 20210114
  Serious: Yes (Hospitalization, Other)
  Sender: FDA-Public Use
  Company Number: IT-JNJFOC-20201253001

PATIENT
  Age: 25 Year
  Sex: Female
  Weight: 50 kg

DRUGS (1)
  1. TRAMADOL HYDROCHLORIDE. [Suspect]
     Active Substance: TRAMADOL HYDROCHLORIDE
     Indication: PRODUCT USED FOR UNKNOWN INDICATION
     Dosage: 10 MILLILITRE, ONCE
     Route: 048
     Dates: start: 20201216, end: 20201216

REACTIONS (5)
  - Sopor [Recovering/Resolving]
  - Intentional overdose [Recovering/Resolving]
  - Clonus [Recovering/Resolving]
  - Suicide attempt [Recovering/Resolving]
  - Respiratory acidosis [Recovering/Resolving]

NARRATIVE: CASE EVENT DATE: 20201216
